FAERS Safety Report 23341801 (Version 2)
Quarter: 2024Q1

REPORT INFORMATION
  Report Type: Report from Study
  Country: FI (occurrence: FI)
  Receive Date: 20231227
  Receipt Date: 20240104
  Transmission Date: 20240410
  Serious: Yes (Life-Threatening, Hospitalization, Other)
  Sender: FDA-Public Use
  Company Number: FI-MYLANLABS-2023M1135174

PATIENT
  Age: 66 Year
  Sex: Female

DRUGS (3)
  1. CLOZAPINE [Suspect]
     Active Substance: CLOZAPINE
     Indication: Schizophrenia
     Dosage: 250 MILLIGRAM, QD
     Route: 065
     Dates: end: 20231212
  2. CLOZAPINE [Suspect]
     Active Substance: CLOZAPINE
     Dosage: 125 MILLIGRAM, QD
     Route: 065
     Dates: start: 202312
  3. CLOZAPINE [Suspect]
     Active Substance: CLOZAPINE
     Dosage: 150 MILLIGRAM
     Route: 065
     Dates: start: 20231213

REACTIONS (8)
  - Hepatitis C [Not Recovered/Not Resolved]
  - Hepatic cirrhosis [Not Recovered/Not Resolved]
  - Hepatic cancer [Not Recovered/Not Resolved]
  - Hepatic encephalopathy [Recovering/Resolving]
  - Neutropenia [Recovered/Resolved]
  - Platelet count decreased [Unknown]
  - COVID-19 [Unknown]
  - Off label use [Unknown]

NARRATIVE: CASE EVENT DATE: 20230101
